FAERS Safety Report 11493638 (Version 2)
Quarter: 2015Q4

REPORT INFORMATION
  Report Type: Report from Study
  Country: NL (occurrence: NL)
  Receive Date: 20150911
  Receipt Date: 20151001
  Transmission Date: 20160304
  Serious: Yes (Hospitalization)
  Sender: FDA-Public Use
  Company Number: NL-AMGEN-NLDSL2015092600

PATIENT
  Age: 50 Year
  Sex: Female

DRUGS (1)
  1. NEULASTA [Suspect]
     Active Substance: PEGFILGRASTIM
     Indication: PROPHYLAXIS
     Dosage: 10 MG/ML,WWSP 0.6ML, 1X3 WEEKS
     Route: 058

REACTIONS (5)
  - Nausea [Unknown]
  - Vomiting [Recovered/Resolved]
  - Diarrhoea [Unknown]
  - Asthenia [Recovered/Resolved]
  - Sweat gland disorder [Recovered/Resolved]

NARRATIVE: CASE EVENT DATE: 20150812
